FAERS Safety Report 23302677 (Version 1)
Quarter: 2023Q4

REPORT INFORMATION
  Report Type: Report from Study
  Country: IT (occurrence: IT)
  Receive Date: 20231215
  Receipt Date: 20231215
  Transmission Date: 20240110
  Serious: Yes (Hospitalization)
  Sender: FDA-Public Use
  Company Number: None

PATIENT
  Age: 18 Year
  Sex: Male

DRUGS (5)
  1. TOPAMAX [Suspect]
     Active Substance: TOPIRAMATE
     Indication: Product used for unknown indication
     Dosage: DOSAGGIO: 125
     Route: 065
     Dates: start: 20231125, end: 20231125
  2. IBUPROFEN [Suspect]
     Active Substance: IBUPROFEN
     Indication: Product used for unknown indication
     Dosage: DOSAGGIO: 6000 MG
     Route: 065
     Dates: start: 20231125, end: 20231125
  3. CETIRIZINE [Suspect]
     Active Substance: CETIRIZINE HYDROCHLORIDE
     Dosage: 100 MG
     Dates: start: 20231125, end: 20231125
  4. LEVETIRACETAM [Suspect]
     Active Substance: LEVETIRACETAM
     Indication: Product used for unknown indication
     Dosage: DOSAGGIO: 45000 MG
     Route: 065
     Dates: start: 20231125, end: 20231125
  5. LAMOTRIGINE [Suspect]
     Active Substance: LAMOTRIGINE
     Indication: Product used for unknown indication
     Dosage: DOSAGGIO: 2400 MG
     Route: 065
     Dates: start: 20231125, end: 20231125

REACTIONS (2)
  - Substance abuse [Unknown]
  - Loss of consciousness [Recovering/Resolving]

NARRATIVE: CASE EVENT DATE: 20231125
